FAERS Safety Report 24594246 (Version 2)
Quarter: 2024Q4

REPORT INFORMATION
  Report Type: Spontaneous
  Country: US (occurrence: US)
  Receive Date: 20241108
  Receipt Date: 20241129
  Transmission Date: 20250114
  Serious: Yes (Other)
  Sender: PFIZER
  Company Number: US-PFIZER INC-PV202400143076

PATIENT
  Age: 87 Year
  Sex: Female
  Weight: 68.934 kg

DRUGS (8)
  1. IBRANCE [Suspect]
     Active Substance: PALBOCICLIB
     Indication: Breast cancer metastatic
     Dosage: ONE TAB BY MOUTH DAILY (10-13 CYCLES)
     Route: 048
     Dates: start: 20220707, end: 20230906
  2. IBRANCE [Suspect]
     Active Substance: PALBOCICLIB
     Indication: Breast cancer female
     Dosage: 125 MG, CYCLIC (DAILY, 6 OF 6 CYCLES, CYCLE 3)
     Route: 048
  3. IBRANCE [Suspect]
     Active Substance: PALBOCICLIB
     Indication: Breast cancer metastatic
     Dosage: 100 MG, DAILY
     Route: 048
  4. IBRANCE [Suspect]
     Active Substance: PALBOCICLIB
     Indication: Breast cancer female
  5. FEMARA [Concomitant]
     Active Substance: LETROZOLE
     Dosage: UNK
  6. DENOSUMAB [Concomitant]
     Active Substance: DENOSUMAB
     Indication: Supportive care
     Dosage: EVERY 84 DAYS
     Route: 058
     Dates: start: 20240207
  7. ADVIL [Concomitant]
     Active Substance: IBUPROFEN
     Dosage: 600 MG, 3X/DAY (EVERY 8 (EIGHT) HOURS AS NEEDED FOR PAIN FOR UP TO 5 DAYS)
     Route: 048
  8. MOTRIN [Concomitant]
     Active Substance: IBUPROFEN
     Dosage: 600 MG, 3X/DAY (EVERY 8 (EIGHT) HOURS AS NEEDED FOR PAIN FOR UP TO 5 DAYS)

REACTIONS (3)
  - Lymphoma [Unknown]
  - Second primary malignancy [Unknown]
  - Neoplasm progression [Unknown]
